FAERS Safety Report 6788168-3 (Version None)
Quarter: 2010Q2

REPORT INFORMATION
  Report Type: 
  Country: None (occurrence: None)
  Receive Date: 20100623
  Receipt Date: 20080117
  Transmission Date: 20101027
  Serious: No
  Sender: FDA-Public Use
  Company Number: US-PFIZER INC-2008006276

PATIENT
  Sex: Female

DRUGS (1)
  1. XALATAN [Suspect]
     Indication: GLAUCOMA
     Route: 047

REACTIONS (4)
  - ANGER [None]
  - DRUG DOSE OMISSION [None]
  - EMOTIONAL DISORDER [None]
  - PRODUCT QUALITY ISSUE [None]
